FAERS Safety Report 4975209-9 (Version None)
Quarter: 2006Q2

REPORT INFORMATION
  Report Type: 
  Country: None (occurrence: None)
  Receive Date: 20060418
  Receipt Date: 20060410
  Transmission Date: 20061013
  Serious: Yes (Other)
  Sender: FDA-Public Use
  Company Number: US-JNJFOC-20060305285

PATIENT
  Sex: Female
  Weight: 65.77 kg

DRUGS (5)
  1. REMICADE [Suspect]
     Indication: CROHN'S DISEASE
     Route: 042
  2. ASACOL [Concomitant]
     Indication: CROHN'S DISEASE
     Route: 048
  3. NIFEREX [Concomitant]
     Dosage: START DATE } 5 YEARS
     Route: 048
  4. PAXIL [Concomitant]
     Indication: DEPRESSION
     Dosage: START DATE }4 YEARS
     Route: 048
  5. ZOLOFT [Concomitant]
     Indication: DEPRESSION
     Route: 048

REACTIONS (2)
  - DRUG EXPOSURE DURING PREGNANCY [None]
  - PLACENTA PRAEVIA [None]
